FAERS Safety Report 7586804-5 (Version None)
Quarter: 2011Q3

REPORT INFORMATION
  Report Type: 
  Country: None (occurrence: None)
  Receive Date: 20110701
  Receipt Date: 20110621
  Transmission Date: 20111222
  Serious: Yes (Other)
  Sender: FDA-Public Use
  Company Number: PHHY2011TW55483

PATIENT
  Age: 26 Year
  Sex: Female

DRUGS (5)
  1. CLOZAPINE [Suspect]
     Dosage: 50 MG, DAILY
  2. BIPERIDEN HYDROCHLORIDE TAB [Concomitant]
     Dosage: 2 MG, DAILY
  3. CLOZAPINE [Suspect]
     Indication: SCHIZOPHRENIA
     Dosage: 12.5 MG, DAILY
  4. BIPERIDEN HYDROCHLORIDE TAB [Concomitant]
     Dosage: 4 MG, DAILY
  5. CLOZAPINE [Suspect]
     Dosage: 25 MG, DAILY

REACTIONS (11)
  - RESPIRATORY FAILURE [None]
  - DROOLING [None]
  - DYSPHAGIA [None]
  - HEART RATE INCREASED [None]
  - RESPIRATORY ACIDOSIS [None]
  - EYELID PTOSIS [None]
  - DYSKINESIA [None]
  - SINUS TACHYCARDIA [None]
  - DYSPHONIA [None]
  - MYASTHENIA GRAVIS [None]
  - PSYCHOTIC DISORDER [None]
